FAERS Safety Report 4927980-X (Version None)
Quarter: 2006Q1

REPORT INFORMATION
  Report Type: 
  Country: None (occurrence: None)
  Receive Date: 20060223
  Receipt Date: 20060207
  Transmission Date: 20060701
  Serious: Yes (Death)
  Sender: FDA-Public Use
  Company Number: S06-CAN-00623-01

PATIENT
  Age: 59 Year
  Sex: Male

DRUGS (2)
  1. CELEXA [Suspect]
     Indication: DEPRESSION
     Dosage: 20 MG QD PO
     Route: 048
     Dates: start: 20040713, end: 20040717
  2. OXAZEPAM [Concomitant]

REACTIONS (6)
  - ANXIETY [None]
  - COMPLETED SUICIDE [None]
  - HYPERHIDROSIS [None]
  - IRRITABILITY [None]
  - NERVOUSNESS [None]
  - RESTLESSNESS [None]
